FAERS Safety Report 4604952-6 (Version None)
Quarter: 2005Q1

REPORT INFORMATION
  Report Type: 
  Country: None (occurrence: None)
  Receive Date: 20050311
  Receipt Date: 20050302
  Transmission Date: 20050727
  Serious: Yes (Other)
  Sender: FDA-Public Use
  Company Number: PHFR2005GB01088

PATIENT

DRUGS (1)
  1. NEORAL [Suspect]
     Indication: HEART TRANSPLANT
     Route: 065

REACTIONS (1)
  - CEREBROVASCULAR ACCIDENT [None]
